FAERS Safety Report 7094727-3 (Version None)
Quarter: 2010Q4

REPORT INFORMATION
  Report Type: 
  Country: None (occurrence: None)
  Receive Date: 20101110
  Receipt Date: 20080725
  Transmission Date: 20110411
  Serious: No
  Sender: FDA-Public Use
  Company Number: US-KINGPHARMUSA00001-K200800894

PATIENT
  Age: 25 Year
  Sex: Male

DRUGS (1)
  1. CYTOMEL [Suspect]
     Indication: AUTOIMMUNE THYROIDITIS
     Dosage: 75 MCG, QD
     Route: 048
     Dates: start: 20080501

REACTIONS (5)
  - ALOPECIA [None]
  - BODY TEMPERATURE DECREASED [None]
  - COELIAC DISEASE [None]
  - DRUG INEFFECTIVE [None]
  - FEELING ABNORMAL [None]
